FAERS Safety Report 7732388-8 (Version None)
Quarter: 2011Q3

REPORT INFORMATION
  Report Type: 
  Country: None (occurrence: None)
  Receive Date: 20110906
  Receipt Date: 20110826
  Transmission Date: 20111222
  Serious: Yes (Other)
  Sender: FDA-Public Use
  Company Number: US-ASTRAZENECA-2011SE51441

PATIENT
  Sex: Female

DRUGS (3)
  1. SEROQUEL [Suspect]
     Route: 048
     Dates: end: 20110414
  2. GEODON [Suspect]
     Route: 048
  3. GEODON [Suspect]
     Route: 048
     Dates: start: 20110613

REACTIONS (2)
  - VISUAL IMPAIRMENT [None]
  - FEELING ABNORMAL [None]
